FAERS Safety Report 13163564 (Version 2)
Quarter: 2017Q1

REPORT INFORMATION
  Report Type: Spontaneous
  Country: US (occurrence: US)
  Receive Date: 20170130
  Receipt Date: 20170207
  Transmission Date: 20170428
  Serious: Yes (Life-Threatening, Hospitalization, Other)
  Sender: FDA-Public Use
  Company Number: US-AMGEN-USASP2017012737

PATIENT
  Age: 45 Year
  Sex: Male
  Weight: 126.8 kg

DRUGS (3)
  1. XARELTO [Concomitant]
     Active Substance: RIVAROXABAN
     Dosage: UNK
  2. NPLATE [Suspect]
     Active Substance: ROMIPLOSTIM
     Indication: IMMUNE THROMBOCYTOPENIC PURPURA
     Dosage: 1 MUG/KG, QWK
     Route: 058
     Dates: start: 201401
  3. NPLATE [Suspect]
     Active Substance: ROMIPLOSTIM
     Dosage: 0.5 MUG/KG, UNK
     Route: 058
     Dates: start: 20170201

REACTIONS (2)
  - Pulmonary embolism [Not Recovered/Not Resolved]
  - Platelet count abnormal [Unknown]

NARRATIVE: CASE EVENT DATE: 20170113
